FAERS Safety Report 20017553 (Version 1)
Quarter: 2021Q4

REPORT INFORMATION
  Report Type: Spontaneous
  Country: DE (occurrence: DE)
  Receive Date: 20211031
  Receipt Date: 20211031
  Transmission Date: 20220303
  Serious: Yes (Hospitalization, Congenital Anomaly, Other)
  Sender: FDA-Public Use
  Company Number: None

PATIENT
  Age: 1 Day
  Sex: Female
  Weight: 3.15 kg

DRUGS (4)
  1. rennie [Concomitant]
     Indication: Dyspepsia
     Route: 064
  2. riopan [Concomitant]
     Indication: Dyspepsia
     Route: 064
  3. VENLAFAXINE [Interacting]
     Active Substance: VENLAFAXINE HYDROCHLORIDE
     Indication: Depression
     Dosage: 300 [MG/D ]/ INITIAL 300MG DAILY, DOSAGE REDUCED TO 150MG/D
     Route: 064
     Dates: start: 20200303, end: 20201208
  4. PROMETHAZINE HYDROCHLORIDE [Interacting]
     Active Substance: PROMETHAZINE HYDROCHLORIDE
     Indication: Sleep disorder
     Dosage: 25 [MG/D ]
     Route: 064
     Dates: start: 20200303, end: 20201208

REACTIONS (12)
  - Patent ductus arteriosus [Recovered/Resolved]
  - Pleural effusion [Recovered/Resolved]
  - Congenital tricuspid valve incompetence [Unknown]
  - Temperature regulation disorder [Recovered/Resolved]
  - Foetal exposure during pregnancy [Unknown]
  - Newborn persistent pulmonary hypertension [Recovered/Resolved]
  - Atrial septal defect [Unknown]
  - Selective eating disorder [Recovered/Resolved]
  - Neonatal respiratory failure [Recovered/Resolved]
  - Neonatal hypotension [Recovered/Resolved]
  - Pulmonary haemorrhage neonatal [Recovered/Resolved]
  - Drug interaction [Unknown]

NARRATIVE: CASE EVENT DATE: 20201208
